FAERS Safety Report 5193374-8 (Version None)
Quarter: 2006Q4

REPORT INFORMATION
  Report Type: 
  Country: None (occurrence: None)
  Receive Date: 20061228
  Receipt Date: 20061024
  Transmission Date: 20070319
  Serious: No
  Sender: FDA-Public Use
  Company Number: US-GLAXOSMITHKLINE-A0624751A

PATIENT
  Age: 67 Year
  Sex: Male

DRUGS (11)
  1. AVODART [Suspect]
     Indication: BENIGN PROSTATIC HYPERPLASIA
     Dosage: .5MG PER DAY
     Route: 048
     Dates: start: 20060901
  2. FLOMAX [Suspect]
     Indication: DRUG USE FOR UNKNOWN INDICATION
     Route: 065
  3. CYCLOSPORINE [Concomitant]
  4. LOPRESSOR [Concomitant]
  5. CAPTOPRESS [Concomitant]
  6. IMURAN [Concomitant]
  7. LIPITOR [Concomitant]
  8. LIBRIUM [Concomitant]
  9. ZANTAC [Concomitant]
  10. VANCOMYCIN [Concomitant]
  11. KEFLEX [Concomitant]

REACTIONS (2)
  - NIGHT SWEATS [None]
  - SLEEP DISORDER [None]
